FAERS Safety Report 10213146 (Version 1)
Quarter: 2014Q2

REPORT INFORMATION
  Report Type: Spontaneous
  Country: GB (occurrence: GB)
  Receive Date: 20140603
  Receipt Date: 20140603
  Transmission Date: 20141212
  Serious: Yes (Life-Threatening)
  Sender: FDA-Public Use
  Company Number: GB-009507513-1406GBR000765

PATIENT
  Age: 67 Year
  Sex: Male

DRUGS (8)
  1. SITAGLIPTIN PHOSPHATE [Suspect]
     Indication: TYPE 2 DIABETES MELLITUS
     Dosage: 100 MG, QD
     Route: 048
     Dates: start: 20130322
  2. ASPIRIN [Concomitant]
  3. ATORVASTATIN [Concomitant]
  4. BISOPROLOL [Concomitant]
  5. CLOPIDOGREL [Concomitant]
  6. COMPETACT [Concomitant]
  7. PANTOPRAZOLE [Concomitant]
  8. SUCRALFATE [Concomitant]

REACTIONS (1)
  - Pancreatic carcinoma metastatic [Not Recovered/Not Resolved]
